FAERS Safety Report 13229623 (Version 2)
Quarter: 2017Q1

REPORT INFORMATION
  Report Type: Spontaneous
  Country: IT (occurrence: IT)
  Receive Date: 20170214
  Receipt Date: 20170308
  Transmission Date: 20170428
  Serious: Yes (Death, Life-Threatening, Hospitalization, Other)
  Sender: FDA-Public Use
  Company Number: IT-ASTRAZENECA-2017SE14240

PATIENT
  Sex: Male

DRUGS (6)
  1. ACETYLSALICYLIC ACID [Suspect]
     Active Substance: ASPIRIN
     Indication: PLATELET AGGREGATION INHIBITION
     Route: 065
  2. KAOLIN [Concomitant]
     Active Substance: KAOLIN
     Route: 065
  3. LEVOSIMENDAN [Concomitant]
     Active Substance: LEVOSIMENDAN
     Indication: LEFT VENTRICULAR DYSFUNCTION
     Route: 065
  4. AGGRASTAT [Concomitant]
     Active Substance: TIROFIBAN HYDROCHLORIDE
     Route: 065
  5. BRILIQUE [Suspect]
     Active Substance: TICAGRELOR
     Indication: PLATELET AGGREGATION INHIBITION
     Route: 048
  6. HEPARIN [Concomitant]
     Active Substance: HEPARIN SODIUM
     Route: 065

REACTIONS (10)
  - Rectal cancer [Unknown]
  - Condition aggravated [Fatal]
  - Anal haemorrhage [Unknown]
  - Gastrointestinal ulcer haemorrhage [Unknown]
  - Rectal haemorrhage [Unknown]
  - Anaemia [Unknown]
  - Procedural haemorrhage [Unknown]
  - Cardiac arrest [Unknown]
  - Haemodynamic instability [Unknown]
  - Haematochezia [Unknown]
